FAERS Safety Report 14922198 (Version 1)
Quarter: 2018Q2

REPORT INFORMATION
  Report Type: Spontaneous
  Country: GB (occurrence: GB)
  Receive Date: 20180522
  Receipt Date: 20180522
  Transmission Date: 20180711
  Serious: Yes (Disabling, Other)
  Sender: FDA-Public Use
  Company Number: GB-ASTRAZENECA-2018SE64233

PATIENT
  Age: 41 Year
  Sex: Male
  Weight: 76.7 kg

DRUGS (2)
  1. SEROQUEL [Suspect]
     Active Substance: QUETIAPINE FUMARATE
     Route: 048
     Dates: start: 20170706
  2. PREDNISOLONE. [Suspect]
     Active Substance: PREDNISOLONE
     Indication: LOWER RESPIRATORY TRACT INFECTION
     Route: 048
     Dates: start: 20180323, end: 20180330

REACTIONS (27)
  - Feeding disorder [Unknown]
  - Chromaturia [Not Recovered/Not Resolved]
  - Delirium [Not Recovered/Not Resolved]
  - Tremor [Not Recovered/Not Resolved]
  - Urine odour abnormal [Not Recovered/Not Resolved]
  - Chest discomfort [Not Recovered/Not Resolved]
  - Paranoia [Not Recovered/Not Resolved]
  - Gait inability [Unknown]
  - Nausea [Not Recovered/Not Resolved]
  - Confusional state [Unknown]
  - Anxiety [Not Recovered/Not Resolved]
  - Anosmia [Not Recovered/Not Resolved]
  - Asthenia [Not Recovered/Not Resolved]
  - Dysgeusia [Not Recovered/Not Resolved]
  - Hallucination [Unknown]
  - Anger [Not Recovered/Not Resolved]
  - Mental impairment [Unknown]
  - Catatonia [Not Recovered/Not Resolved]
  - Pyrexia [Not Recovered/Not Resolved]
  - Headache [Not Recovered/Not Resolved]
  - Drug interaction [Unknown]
  - Urinary incontinence [Not Recovered/Not Resolved]
  - Amnesia [Not Recovered/Not Resolved]
  - Cold sweat [Unknown]
  - Aggression [Unknown]
  - Dysarthria [Unknown]
  - Dry mouth [Unknown]

NARRATIVE: CASE EVENT DATE: 20180323
